FAERS Safety Report 9724843 (Version 2)
Quarter: 2014Q1

REPORT INFORMATION
  Report Type: Spontaneous
  Country: US (occurrence: US)
  Receive Date: 20131202
  Receipt Date: 20140109
  Transmission Date: 20141002
  Serious: No
  Sender: FDA-Public Use
  Company Number: US-009507513-1311USA007866

PATIENT
  Age: 6 Year
  Sex: Female
  Weight: 20.41 kg

DRUGS (3)
  1. DULERA [Suspect]
     Indication: SINUSITIS
     Dosage: 200 MCG/5MCG TAKEN 1 PUFF IN THE EVENING
     Route: 055
     Dates: start: 20131016, end: 20131016
  2. DULERA [Suspect]
     Indication: COUGH
  3. AMOXICILLIN [Concomitant]

REACTIONS (7)
  - Pyrexia [Recovered/Resolved]
  - Headache [Recovered/Resolved]
  - Drug administered to patient of inappropriate age [Unknown]
  - Off label use [Unknown]
  - Inappropriate schedule of drug administration [Unknown]
  - Drug prescribing error [Unknown]
  - Underdose [Unknown]
